FAERS Safety Report 15968666 (Version 5)
Quarter: 2022Q2

REPORT INFORMATION
  Report Type: Report from Study
  Country: CA (occurrence: CA)
  Receive Date: 20190215
  Receipt Date: 20220401
  Transmission Date: 20220721
  Serious: Yes (Hospitalization, Other)
  Sender: FDA-Public Use
  Company Number: CA-TAKEDA-2019TUS006092

PATIENT
  Age: 11 Year
  Sex: Male

DRUGS (8)
  1. VEDOLIZUMAB [Suspect]
     Active Substance: VEDOLIZUMAB
     Indication: Short-bowel syndrome
     Dosage: 300 MILLIGRAM
     Route: 042
     Dates: start: 20190114
  2. LOPERAMIDE [Concomitant]
     Active Substance: LOPERAMIDE
     Dosage: 6 MILLIGRAM, TID
  3. SUCRALFATE [Concomitant]
     Active Substance: SUCRALFATE
     Dosage: 500 MILLIGRAM, TID
  4. Amoxiclavolin [Concomitant]
     Dosage: UNK
  5. CIPROFLOXACIN [Concomitant]
     Active Substance: CIPROFLOXACIN
     Dosage: UNK
  6. PANTOPRAZOLE [Concomitant]
     Active Substance: PANTOPRAZOLE
     Dosage: 16 MILLIGRAM, QD
  7. VITAMIN D NOS [Concomitant]
     Active Substance: VITAMIN D NOS
     Dosage: UNK
  8. TPN                                /07403901/ [Concomitant]
     Dosage: UNK UNK, QD
     Route: 042

REACTIONS (3)
  - Gastrointestinal haemorrhage [Unknown]
  - Intestinal transplant [Unknown]
  - Off label use [Unknown]

NARRATIVE: CASE EVENT DATE: 20190114
